FAERS Safety Report 6574248-4 (Version None)
Quarter: 2010Q1

REPORT INFORMATION
  Report Type: 
  Country: None (occurrence: None)
  Receive Date: 20100201
  Receipt Date: 20100118
  Transmission Date: 20100710
  Serious: Yes (Disabling)
  Sender: FDA-Public Use
  Company Number: 2010AL000505

PATIENT
  Age: 75 Year
  Sex: Female

DRUGS (7)
  1. MIRTAZAPINE [Suspect]
     Dosage: PO
     Route: 048
     Dates: start: 20051206, end: 20051206
  2. AZATHIOPRINE [Concomitant]
  3. PREDNISOLONE [Concomitant]
  4. NIFEDIPINE [Concomitant]
  5. BEZAFIBRATE [Concomitant]
  6. ASPIRIN [Concomitant]
  7. FOSAMAX [Concomitant]

REACTIONS (3)
  - HEADACHE [None]
  - POISONING [None]
  - SEROTONIN SYNDROME [None]
